FAERS Safety Report 24353612 (Version 1)
Quarter: 2024Q3

REPORT INFORMATION
  Report Type: Spontaneous
  Country: CN (occurrence: CN)
  Receive Date: 20240923
  Receipt Date: 20240923
  Transmission Date: 20241017
  Serious: Yes (Death, Other)
  Sender: PFIZER
  Company Number: CN-PFIZER INC-PV202400124011

PATIENT
  Sex: Female

DRUGS (1)
  1. IBRANCE [Suspect]
     Active Substance: PALBOCICLIB
     Dosage: 125 MG, QD
     Route: 048
     Dates: start: 20240318, end: 20240831

REACTIONS (1)
  - Cerebral haemorrhage [Fatal]
